FAERS Safety Report 4640281-2 (Version None)
Quarter: 2005Q2

REPORT INFORMATION
  Report Type: 
  Country: None (occurrence: None)
  Receive Date: 20050420
  Receipt Date: 20050411
  Transmission Date: 20051028
  Serious: Yes (Other)
  Sender: FDA-Public Use
  Company Number: US-JNJFOC-20050305422

PATIENT
  Age: 88 Year
  Sex: Male

DRUGS (7)
  1. ULTRAM [Suspect]
     Indication: DRUG USE FOR UNKNOWN INDICATION
  2. FELODIPINE [Concomitant]
  3. CLONIDINE [Concomitant]
  4. HYDROCHLOROTHIAZIDE [Concomitant]
  5. ASPIRIN [Concomitant]
  6. PAROXETINE HCL [Concomitant]
  7. ESOMEPRAZOLE [Concomitant]

REACTIONS (4)
  - AORTIC ANEURYSM [None]
  - BLOOD PRESSURE DECREASED [None]
  - CARDIOMEGALY [None]
  - PERICARDITIS [None]
